FAERS Safety Report 17651537 (Version 1)
Quarter: 2020Q2

REPORT INFORMATION
  Report Type: Spontaneous
  Country: IT (occurrence: IT)
  Receive Date: 20200409
  Receipt Date: 20200409
  Transmission Date: 20200713
  Serious: Yes (Disabling)
  Sender: FDA-Public Use
  Company Number: IT-CELGENEUS-ITA-20200401795

PATIENT
  Age: 10 Year
  Sex: Male

DRUGS (2)
  1. HYDROCORTISONE. [Concomitant]
     Active Substance: HYDROCORTISONE
     Indication: ADRENOGENITAL SYNDROME
     Route: 048
  2. THALIDOMIDE CELGENE [Suspect]
     Active Substance: THALIDOMIDE
     Indication: PRODUCT USED FOR UNKNOWN INDICATION
     Dosage: 1.6 MILLIGRAM
     Route: 048
     Dates: start: 20190701, end: 20200224

REACTIONS (3)
  - Headache [Unknown]
  - Idiopathic intracranial hypertension [Unknown]
  - Diplopia [Unknown]

NARRATIVE: CASE EVENT DATE: 20200224
